FAERS Safety Report 9220897 (Version 1)
Quarter: 2013Q2

REPORT INFORMATION
  Report Type: Spontaneous
  Country: DE (occurrence: DE)
  Receive Date: 20130409
  Receipt Date: 20130409
  Transmission Date: 20140414
  Serious: Yes (Congenital Anomaly, Other)
  Sender: FDA-Public Use
  Company Number: DE-TEVA-395716GER

PATIENT
  Age: 0 Year
  Sex: Male

DRUGS (3)
  1. LAMOTRIGINE [Suspect]
     Route: 064
  2. VALPROIC ACID [Suspect]
     Route: 064
  3. FOLIO [Concomitant]
     Route: 064

REACTIONS (3)
  - Aplasia cutis congenita [Not Recovered/Not Resolved]
  - Transient tachypnoea of the newborn [Recovered/Resolved]
  - Conjunctivitis bacterial [Unknown]
